FAERS Safety Report 25524110 (Version 1)
Quarter: 2025Q3

REPORT INFORMATION
  Report Type: Spontaneous
  Country: US (occurrence: None)
  Receive Date: 20250703
  Receipt Date: 20250703
  Transmission Date: 20251021
  Serious: No
  Sender: FDA-CTU
  Company Number: None

PATIENT
  Age: 69 Year
  Sex: Male

DRUGS (1)
  1. RINVOQ [Suspect]
     Active Substance: UPADACITINIB
     Indication: Eczema
     Dosage: FREQUENCY : DAILY;?
     Route: 048
     Dates: start: 20240630, end: 20250630

REACTIONS (3)
  - Blood cholesterol increased [None]
  - Therapy interrupted [None]
  - Eczema [None]

NARRATIVE: CASE EVENT DATE: 20250630
